FAERS Safety Report 11851773 (Version 1)
Quarter: 2015Q4

REPORT INFORMATION
  Report Type: Report from Study
  Country: CA (occurrence: CA)
  Receive Date: 20151218
  Receipt Date: 20151218
  Transmission Date: 20160305
  Serious: Yes (Other)
  Sender: FDA-Public Use
  Company Number: CA-ABBVIE-15K-028-1519766-00

PATIENT
  Sex: Male

DRUGS (2)
  1. HUMIRA [Suspect]
     Active Substance: ADALIMUMAB
     Dosage: ALTERNATING 80 MG AND 40 MG
     Route: 058
  2. HUMIRA [Suspect]
     Active Substance: ADALIMUMAB
     Indication: CROHN^S DISEASE
     Dosage: ALTERNATING 80 MG AND 40 MG
     Route: 058
     Dates: start: 20090113

REACTIONS (2)
  - Faecal incontinence [Not Recovered/Not Resolved]
  - Crohn^s disease [Not Recovered/Not Resolved]
